FAERS Safety Report 11823118 (Version 2)
Quarter: 2016Q1

REPORT INFORMATION
  Report Type: Other
  Country: US (occurrence: US)
  Receive Date: 20151210
  Receipt Date: 20160121
  Transmission Date: 20160525
  Serious: Yes (Life-Threatening, Hospitalization, Other)
  Sender: FDA-Public Use
  Company Number: US-SHIRE-US201515987

PATIENT
  Sex: Female

DRUGS (2)
  1. FIRAZYR [Suspect]
     Active Substance: ICATIBANT ACETATE
     Indication: HEREDITARY ANGIOEDEMA
     Dosage: 30 MG, UNKNOWN (21 PER MONTH)
     Route: 058
     Dates: start: 201112, end: 201512
  2. FIRAZYR [Suspect]
     Active Substance: ICATIBANT ACETATE
     Dosage: 30 MG, UNKNOWN (8 PER MONTH)
     Route: 058

REACTIONS (5)
  - Fatigue [Not Recovered/Not Resolved]
  - Adverse event [Not Recovered/Not Resolved]
  - Hospitalisation [Unknown]
  - Drug prescribing error [Recovered/Resolved]
  - Drug dose omission [Not Recovered/Not Resolved]
